FAERS Safety Report 7470604-0 (Version None)
Quarter: 2011Q2

REPORT INFORMATION
  Report Type: 
  Country: None (occurrence: None)
  Receive Date: 20110510
  Receipt Date: 20110428
  Transmission Date: 20111010
  Serious: Yes (Hospitalization)
  Sender: FDA-Public Use
  Company Number: DE-ELI_LILLY_AND_COMPANY-DE201102007107

PATIENT
  Sex: Female

DRUGS (4)
  1. INSULIN [Suspect]
     Dosage: 15 D/F, OTHER
     Route: 058
     Dates: end: 20110210
  2. BETA BLOCKING AGENTS [Concomitant]
     Dosage: UNK
  3. INSULIN [Suspect]
     Indication: GESTATIONAL DIABETES
     Dosage: 8 D/F, OTHER
     Route: 058
     Dates: start: 20110111
  4. HUMULIN N [Suspect]
     Indication: GESTATIONAL DIABETES
     Dosage: UNK
     Route: 058
     Dates: start: 20110111, end: 20110210

REACTIONS (9)
  - BLOOD PRESSURE INCREASED [None]
  - DRUG HYPERSENSITIVITY [None]
  - DRUG EXPOSURE DURING PREGNANCY [None]
  - FLUSHING [None]
  - ERYTHEMA [None]
  - DYSPNOEA [None]
  - RASH PUSTULAR [None]
  - PRURITUS [None]
  - BLOOD GLUCOSE FLUCTUATION [None]
